FAERS Safety Report 21831901 (Version 1)
Quarter: 2023Q1

REPORT INFORMATION
  Report Type: Spontaneous
  Country: US (occurrence: None)
  Receive Date: 20230106
  Receipt Date: 20230106
  Transmission Date: 20230417
  Serious: Yes (Hospitalization, Other)
  Sender: FDA-Public Use
  Company Number: None

PATIENT
  Age: 38 Year
  Sex: Female
  Weight: 81 kg

DRUGS (2)
  1. INFED [Suspect]
     Active Substance: IRON DEXTRAN
     Indication: Iron deficiency anaemia
     Dosage: FREQUENCY : ONCE;?
     Route: 041
     Dates: start: 20221222, end: 20221222
  2. IRON DEXTRAN [Concomitant]
     Active Substance: IRON DEXTRAN
     Dates: start: 20221222, end: 20221222

REACTIONS (14)
  - Infusion related reaction [None]
  - Dyspnoea [None]
  - Chest pain [None]
  - Back pain [None]
  - Headache [None]
  - Nausea [None]
  - Adverse drug reaction [None]
  - Generalised tonic-clonic seizure [None]
  - Dizziness [None]
  - Fatigue [None]
  - Balance disorder [None]
  - Gait disturbance [None]
  - Impaired work ability [None]
  - Loss of personal independence in daily activities [None]

NARRATIVE: CASE EVENT DATE: 20221222
